FAERS Safety Report 8822879 (Version 1)
Quarter: 2012Q4

REPORT INFORMATION
  Report Type: 
  Country: US (occurrence: US)
  Receive Date: 20121003
  Receipt Date: 20121003
  Transmission Date: 20130627
  Serious: No
  Sender: FDA-Public Use
  Company Number: US-009507513-1209USA011102

PATIENT
  Sex: Male

DRUGS (4)
  1. PEGINTRON [Suspect]
     Indication: HEPATITIS C
     Dosage: UNK
     Dates: start: 1997, end: 1998
  2. PEGINTRON [Suspect]
     Dosage: UNK
     Dates: start: 2001
  3. REBETOL [Suspect]
     Indication: HEPATITIS C
     Dosage: UNK
     Route: 048
     Dates: start: 1997, end: 1998
  4. REBETOL [Suspect]
     Dosage: UNK
     Dates: start: 2001

REACTIONS (3)
  - Pain [Recovering/Resolving]
  - Abdominal discomfort [Recovering/Resolving]
  - Chills [Recovering/Resolving]
